FAERS Safety Report 7888123-6 (Version None)
Quarter: 2011Q4

REPORT INFORMATION
  Report Type: 
  Country: None (occurrence: None)
  Receive Date: 20111103
  Receipt Date: 20111026
  Transmission Date: 20120403
  Serious: Yes (Hospitalization, Other)
  Sender: FDA-Public Use
  Company Number: US-JNJFOC-20111012334

PATIENT
  Sex: Female
  Weight: 81.65 kg

DRUGS (10)
  1. METOPROLOL TARTRATE [Concomitant]
     Indication: CARDIAC DISORDER
     Route: 048
  2. LISINOPRIL [Concomitant]
     Indication: BLOOD PRESSURE
     Dosage: HALF TABLET OF 0.5 MG
     Route: 065
  3. FENTANYL-100 [Suspect]
     Route: 062
     Dates: start: 20080101
  4. TRAMADOL HCL [Concomitant]
     Indication: PAIN
     Route: 048
  5. TYLENOL-500 [Concomitant]
     Indication: PAIN
     Route: 065
  6. VESICARE [Concomitant]
     Indication: URINARY TRACT DISORDER
     Route: 048
  7. ASPIRIN [Concomitant]
     Indication: PROPHYLAXIS
     Route: 048
  8. CLONAZEPAM [Concomitant]
     Indication: PRODUCT USED FOR UNKNOWN INDICATION
     Route: 048
  9. FENTANYL-100 [Suspect]
     Indication: PAIN
     Dosage: INITIATED ABOUT TEN TO TWENTY YEARS AGO
     Route: 062
     Dates: end: 20080101
  10. NEXIUM [Concomitant]
     Indication: GASTROOESOPHAGEAL REFLUX DISEASE
     Route: 048

REACTIONS (6)
  - INAPPROPRIATE SCHEDULE OF DRUG ADMINISTRATION [None]
  - WITHDRAWAL SYNDROME [None]
  - ARTHRALGIA [None]
  - FORMICATION [None]
  - CORONARY ARTERY DISEASE [None]
  - BODY HEIGHT DECREASED [None]
